FAERS Safety Report 4357416-1 (Version None)
Quarter: 2004Q2

REPORT INFORMATION
  Report Type: 
  Country: None (occurrence: None)
  Receive Date: 20040511
  Receipt Date: 20040511
  Transmission Date: 20050107
  Serious: Yes (Other)
  Sender: FDA-Public Use
  Company Number: None

PATIENT
  Sex: Male
  Weight: 81.1939 kg

DRUGS (5)
  1. LISINOPRIL [Suspect]
     Indication: HYPERTENSION
     Dosage: 40 MG PO QD
     Route: 048
     Dates: start: 20020509, end: 20031211
  2. CYANOCOBALAMIN [Concomitant]
  3. FELODIPINE [Concomitant]
  4. LATANOPROST [Concomitant]
  5. LEVOBUNOLOL HCL [Concomitant]

REACTIONS (3)
  - RASH [None]
  - SWELLING FACE [None]
  - TREATMENT NONCOMPLIANCE [None]
